FAERS Safety Report 6377364-5 (Version None)
Quarter: 2009Q3

REPORT INFORMATION
  Report Type: 
  Country: None (occurrence: None)
  Receive Date: 20090923
  Receipt Date: 20090923
  Transmission Date: 20100115
  Serious: Yes (Hospitalization)
  Sender: FDA-Public Use
  Company Number: None

PATIENT
  Age: 61 Year
  Sex: Male

DRUGS (13)
  1. LEVOFLOX [Suspect]
     Indication: INFECTION
     Dosage: 250 MG PO X 1
     Route: 048
     Dates: start: 20090710
  2. AMLODIPINE [Concomitant]
  3. ATVAN [Concomitant]
  4. AVAPRO [Concomitant]
  5. LABETALOL HCL [Concomitant]
  6. LASIX [Concomitant]
  7. NEPHROCAPS [Concomitant]
  8. PRILOSEC [Concomitant]
  9. SIMVASTATIN [Concomitant]
  10. TRANDATE [Concomitant]
  11. APAP TAB [Concomitant]
  12. VISTARIL [Concomitant]
  13. ZOLOFT [Concomitant]

REACTIONS (6)
  - CHILLS [None]
  - DRUG ADMINISTRATION ERROR [None]
  - EYE SWELLING [None]
  - OCULAR HYPERAEMIA [None]
  - PRURITUS GENERALISED [None]
  - PYREXIA [None]
